FAERS Safety Report 10554293 (Version 2)
Quarter: 2014Q4

REPORT INFORMATION
  Report Type: Spontaneous
  Country: US (occurrence: US)
  Receive Date: 20141030
  Receipt Date: 20141105
  Transmission Date: 20150529
  Serious: No
  Sender: FDA-Public Use
  Company Number: US-PFIZER INC-2014296441

PATIENT
  Age: 64 Year
  Sex: Male
  Weight: 75 kg

DRUGS (8)
  1. DIGOXIN. [Concomitant]
     Active Substance: DIGOXIN
     Dosage: 125 UG, 1X/DAY
     Route: 048
  2. COLCRYS [Concomitant]
     Active Substance: COLCHICINE
     Dosage: TWO TABLETS (STRENTH: 0.6MG) DAILY
     Route: 048
  3. COREG [Concomitant]
     Active Substance: CARVEDILOL
     Dosage: 3.125 MG, DAILY
     Route: 048
  4. VASOTEC [Concomitant]
     Active Substance: ENALAPRIL MALEATE
     Indication: CARDIAC DISORDER
     Dosage: 5 MG, DAILY
     Route: 048
  5. ASPIRIN. [Concomitant]
     Active Substance: ASPIRIN
     Dosage: 81MG TABLET ONCE A DAY
     Route: 048
  6. ALDACTONE [Suspect]
     Active Substance: SPIRONOLACTONE
     Indication: MYOCARDIAL INFARCTION
     Dosage: 25 MG, 1X/DAY
     Route: 048
     Dates: end: 20141014
  7. ZOCOR [Concomitant]
     Active Substance: SIMVASTATIN
     Indication: BLOOD CHOLESTEROL
     Dosage: 40MG ONCE A DAY AT NIGHT
  8. LASIX [Concomitant]
     Active Substance: FUROSEMIDE
     Dosage: 20MG TWICE A DAY IN THE MORNING AND NIGHT

REACTIONS (6)
  - Blood oestrogen increased [Unknown]
  - Gynaecomastia [Unknown]
  - Erectile dysfunction [Recovering/Resolving]
  - Weight fluctuation [Unknown]
  - Breast mass [Unknown]
  - Breast pain [Unknown]

NARRATIVE: CASE EVENT DATE: 1993
